FAERS Safety Report 19724888 (Version 8)
Quarter: 2023Q2

REPORT INFORMATION
  Report Type: Report from Study
  Country: JP (occurrence: JP)
  Receive Date: 20210819
  Receipt Date: 20230530
  Transmission Date: 20230721
  Serious: Yes (Death, Hospitalization, Other)
  Sender: FDA-Public Use
  Company Number: JP-ONO-2021JP019382

PATIENT
  Age: 49 Year
  Sex: Male
  Weight: 60.5 kg

DRUGS (20)
  1. BRAFTOVI [Suspect]
     Active Substance: ENCORAFENIB
     Indication: Papillary thyroid cancer
     Dosage: 450 MG, EVERYDAY
     Route: 048
     Dates: start: 20210714, end: 20210806
  2. BRAFTOVI [Suspect]
     Active Substance: ENCORAFENIB
     Dosage: 450 MG, EVERYDAY
     Route: 048
     Dates: start: 20210816
  3. BRAFTOVI [Suspect]
     Active Substance: ENCORAFENIB
     Dosage: 450 MG, EVERYDAY
     Route: 048
     Dates: end: 20220519
  4. MEKTOVI [Suspect]
     Active Substance: BINIMETINIB
     Indication: Papillary thyroid cancer
     Dosage: 45 MG, Q12H
     Route: 048
     Dates: start: 20210714, end: 20210806
  5. MEKTOVI [Suspect]
     Active Substance: BINIMETINIB
     Dosage: 45 MG, Q12H
     Route: 048
     Dates: start: 20210816
  6. MEKTOVI [Suspect]
     Active Substance: BINIMETINIB
     Dosage: 45 MG, Q12H
     Route: 048
     Dates: end: 20220519
  7. SULFAMETHOXAZOLE\TRIMETHOPRIM [Suspect]
     Active Substance: SULFAMETHOXAZOLE\TRIMETHOPRIM
     Indication: Antifungal prophylaxis
     Dosage: 1 DF, EVERYDAY
     Route: 048
     Dates: start: 20210714, end: 20210806
  8. NAPROXEN SODIUM [Concomitant]
     Active Substance: NAPROXEN SODIUM
     Indication: Analgesic therapy
     Dosage: 200 MG, Q8H
     Route: 048
     Dates: start: 20210714
  9. AZILSARTAN KAMEDOXOMIL [Concomitant]
     Active Substance: AZILSARTAN KAMEDOXOMIL
     Indication: Hypertension
     Dosage: 20 MG, EVERYDAY
     Route: 048
  10. CARBOCYSTEINE [Concomitant]
     Active Substance: CARBOCYSTEINE
     Indication: Productive cough
     Dosage: 500 MG, Q8H
     Route: 048
  11. VONOPRAZAN FUMARATE [Concomitant]
     Active Substance: VONOPRAZAN FUMARATE
     Indication: Gastritis prophylaxis
     Dosage: 20 MG, EVERYDAY
     Route: 048
  12. LEVOTHYROXINE SODIUM [Concomitant]
     Active Substance: LEVOTHYROXINE SODIUM
     Indication: Hypothyroidism
     Dosage: 250 UG, EVERYDAY
     Route: 048
  13. DECADRON [Concomitant]
     Active Substance: DEXAMETHASONE
     Indication: Lymphangiosis carcinomatosa
     Dosage: 4 MG, EVERYDAY
     Route: 048
     Dates: start: 20210624, end: 20210628
  14. DECADRON [Concomitant]
     Active Substance: DEXAMETHASONE
     Dosage: 2 MG, EVERYDAY
     Route: 048
     Dates: start: 20210629, end: 20210629
  15. DECADRON [Concomitant]
     Active Substance: DEXAMETHASONE
     Dosage: 4 MG, EVERYDAY
     Route: 048
     Dates: start: 20210729
  16. ELIQUIS [Concomitant]
     Active Substance: APIXABAN
     Indication: Thrombosis
     Dosage: 10 MG, Q12H
     Route: 048
     Dates: start: 20210805
  17. DECADRON [Concomitant]
     Active Substance: DEXAMETHASONE
     Indication: Lymphangiosis carcinomatosa
     Dosage: 6.6 MG
     Route: 041
     Dates: start: 20210630, end: 20210729
  18. FELBINAC PLASTER [Concomitant]
     Indication: Analgesic therapy
     Dosage: 35 MG, Q12H
     Route: 062
     Dates: start: 20220520
  19. ACETAMINOPHEN [Concomitant]
     Active Substance: ACETAMINOPHEN
     Indication: Analgesic therapy
     Dosage: 150 MG, Q6H
     Route: 048
     Dates: start: 20220520
  20. NEXAVAR [Concomitant]
     Active Substance: SORAFENIB
     Indication: Papillary thyroid cancer
     Dosage: UNK
     Route: 065
     Dates: start: 20220526, end: 20220601

REACTIONS (7)
  - Neoplasm progression [Fatal]
  - Febrile neutropenia [Recovered/Resolved]
  - Anaemia [Not Recovered/Not Resolved]
  - Pleural effusion [Recovered/Resolved]
  - Pleural effusion [Recovered/Resolved]
  - Pleural effusion [Recovered/Resolved]
  - Pleural effusion [Recovered/Resolved]

NARRATIVE: CASE EVENT DATE: 20210729
